FAERS Safety Report 4951921-2 (Version None)
Quarter: 2006Q1

REPORT INFORMATION
  Report Type: 
  Country: None (occurrence: None)
  Receive Date: 20060323
  Receipt Date: 20050414
  Transmission Date: 20060701
  Serious: Yes (Hospitalization)
  Sender: FDA-Public Use
  Company Number: US-MERCK-0504USA02539

PATIENT
  Age: 46 Year
  Sex: Female
  Weight: 118 kg

DRUGS (4)
  1. VIOXX [Suspect]
     Indication: MONARTHRITIS
     Route: 048
     Dates: start: 19990201, end: 20000101
  2. THEOPHYLLINE [Concomitant]
     Route: 065
  3. CELEBREX [Concomitant]
     Route: 065
  4. PREVACID [Concomitant]
     Route: 065

REACTIONS (3)
  - GASTROOESOPHAGEAL REFLUX DISEASE [None]
  - KNEE OPERATION [None]
  - MYOCARDIAL INFARCTION [None]
